FAERS Safety Report 4546058-0 (Version None)
Quarter: 2005Q1

REPORT INFORMATION
  Report Type: 
  Country: None (occurrence: None)
  Receive Date: 20050103
  Receipt Date: 20041216
  Transmission Date: 20050727
  Serious: Yes (Hospitalization, Other)
  Sender: FDA-Public Use
  Company Number: 2004230212US

PATIENT
  Age: 81 Year
  Sex: Female

DRUGS (4)
  1. CLEOCIN HCL [Suspect]
     Indication: ABSCESS
     Dosage: 150 MG, ORAL
     Route: 048
     Dates: start: 20040218, end: 20040201
  2. LEVOTHYROXINE SODIUM [Concomitant]
  3. LANSOPRAZOLE [Concomitant]
  4. MULTIVITAMINS (ASCORBIC ACID/ERGOCALCIFEROL/FOLIC ACID/NICOTINAMIDE/PA [Concomitant]

REACTIONS (11)
  - ASTHENIA [None]
  - CONDITION AGGRAVATED [None]
  - DIARRHOEA [None]
  - DIFFICULTY IN WALKING [None]
  - EMOTIONAL DISTRESS [None]
  - FEELING ABNORMAL [None]
  - GASTROOESOPHAGEAL REFLUX DISEASE [None]
  - HIATUS HERNIA [None]
  - INTESTINAL ISCHAEMIA [None]
  - MUSCLE DISORDER [None]
  - ORAL INTAKE REDUCED [None]
